FAERS Safety Report 7069542-7 (Version None)
Quarter: 2010Q4

REPORT INFORMATION
  Report Type: 
  Country: None (occurrence: None)
  Receive Date: 20101028
  Receipt Date: 20100129
  Transmission Date: 20110411
  Serious: No
  Sender: FDA-Public Use
  Company Number: US-WYE-H13378510

PATIENT
  Sex: Female

DRUGS (2)
  1. EFFEXOR [Suspect]
     Dosage: UNKNOWN
     Dates: start: 20070101
  2. EFFEXOR [Suspect]
     Dosage: ^TRIED TO WEAN OFF^

REACTIONS (3)
  - DRUG WITHDRAWAL SYNDROME [None]
  - INFLUENZA LIKE ILLNESS [None]
  - MALAISE [None]
